FAERS Safety Report 4587737-9 (Version None)
Quarter: 2005Q1

REPORT INFORMATION
  Report Type: 
  Country: None (occurrence: None)
  Receive Date: 20050218
  Receipt Date: 20050215
  Transmission Date: 20050727
  Serious: Yes (Hospitalization)
  Sender: FDA-Public Use
  Company Number: FR-MERCK-0502USA02010

PATIENT
  Age: 76 Year
  Sex: Female

DRUGS (7)
  1. MODURETIC 5-50 [Suspect]
     Route: 048
     Dates: end: 20041221
  2. MODURETIC 5-50 [Suspect]
     Route: 065
     Dates: start: 20041201
  3. ATENOLOL [Concomitant]
     Route: 065
  4. POTASSIUM CHLORIDE [Concomitant]
     Route: 065
  5. CALCIUM CARBONATE [Concomitant]
     Route: 065
  6. ATORVASTATIN CALCIUM [Concomitant]
     Route: 065
  7. TRIMETAZIDINE HYDROCHLORIDE [Concomitant]
     Route: 065

REACTIONS (5)
  - CONFUSIONAL STATE [None]
  - FALL [None]
  - HUMERUS FRACTURE [None]
  - HYPONATRAEMIA [None]
  - VOMITING [None]
